FAERS Safety Report 15565150 (Version 1)
Quarter: 2018Q4

REPORT INFORMATION
  Report Type: Spontaneous
  Country: CL (occurrence: CL)
  Receive Date: 20181030
  Receipt Date: 20181030
  Transmission Date: 20190205
  Serious: Yes (Death, Hospitalization)
  Sender: FDA-Public Use
  Company Number: CL-SCIEGEN PHARMACEUTICALS INC-2018SCILIT00689

PATIENT

DRUGS (1)
  1. BUPROPION HYDROCHLORIDE. [Suspect]
     Active Substance: BUPROPION HYDROCHLORIDE
     Indication: PRODUCT USED FOR UNKNOWN INDICATION
     Dosage: 9.5 G, UNK
     Route: 048

REACTIONS (11)
  - Gaze palsy [Recovered/Resolved]
  - Myoclonus [Unknown]
  - Hypotension [Unknown]
  - Overdose [Unknown]
  - Cardiac arrest [Recovered/Resolved]
  - Death [Fatal]
  - Electrocardiogram QT prolonged [Unknown]
  - Altered state of consciousness [Unknown]
  - Seizure [Unknown]
  - Coma [Unknown]
  - Tachycardia [Unknown]
